FAERS Safety Report 11373422 (Version 1)
Quarter: 2015Q3

REPORT INFORMATION
  Report Type: Spontaneous
  Country: US (occurrence: US)
  Receive Date: 20150811
  Receipt Date: 20150811
  Transmission Date: 20151125
  Serious: No
  Sender: FDA-Public Use
  Company Number: US-ELI_LILLY_AND_COMPANY-US201211008693

PATIENT
  Age: 58 Year
  Sex: Male

DRUGS (3)
  1. CIALIS [Interacting]
     Active Substance: TADALAFIL
     Dosage: 5 MG, PRN
  2. LASIX [Interacting]
     Active Substance: FUROSEMIDE
  3. CIALIS [Suspect]
     Active Substance: TADALAFIL
     Indication: ERECTILE DYSFUNCTION
     Dosage: 5 MG, QD

REACTIONS (2)
  - Drug ineffective [Unknown]
  - Drug interaction [Unknown]
